FAERS Safety Report 17569308 (Version 3)
Quarter: 2020Q2

REPORT INFORMATION
  Report Type: Spontaneous
  Country: US (occurrence: US)
  Receive Date: 20200322
  Receipt Date: 20200522
  Transmission Date: 20200713
  Serious: Yes (Hospitalization)
  Sender: FDA-Public Use
  Company Number: US-TEVA-2020-US-1207726

PATIENT
  Age: 43 Year
  Sex: Male
  Weight: 60.32 kg

DRUGS (2)
  1. OPSUMIT [Concomitant]
     Active Substance: MACITENTAN
  2. EPOPROSTENOL. [Suspect]
     Active Substance: EPOPROSTENOL
     Dosage: DOSE AND ROUTE: EPOPROSTENOL DOSE 77 NG PER KG PER MIN FREQUENCY: CONTINUOUS, STRENGTH: 1.5 MG/VIAL
     Route: 065
     Dates: start: 20161004

REACTIONS (5)
  - Fatigue [Unknown]
  - Dysstasia [Unknown]
  - Renal failure [Unknown]
  - Pyrexia [Unknown]
  - Hospitalisation [Unknown]

NARRATIVE: CASE EVENT DATE: 20200416
